FAERS Safety Report 13359968 (Version 1)
Quarter: 2017Q1

REPORT INFORMATION
  Report Type: Spontaneous
  Country: US (occurrence: US)
  Receive Date: 20170322
  Receipt Date: 20170322
  Transmission Date: 20170429
  Serious: No
  Sender: FDA-Public Use
  Company Number: US-B.I. PHARMACEUTICALS,INC./RIDGEFIELD-2017-BI-013934

PATIENT
  Age: 72 Year
  Sex: Female

DRUGS (3)
  1. MOBIC [Suspect]
     Active Substance: MELOXICAM
     Indication: ARTHRITIS
     Dosage: 1 TAB DAILY;  FORM STRENGTH: 15 MG; FORMULATION: TABLET? ADMINISTRATION CORRECT? YES ?ACTION(S) TAKE
     Route: 048
     Dates: start: 20170206, end: 20170220
  2. ALLOPURINOL. [Concomitant]
     Active Substance: ALLOPURINOL
     Indication: NEPHROLITHIASIS
     Dosage: 1 TAVB DAILY;  FORM STRENGTH: 300MG; FORMULATION: TABLET
     Route: 048
  3. ARIMIDEX [Concomitant]
     Active Substance: ANASTROZOLE
     Indication: BREAST CANCER
     Dosage: 1 TAB DAILY;  FORM STRENGTH: 1 MG; FORMULATION: TABLET
     Route: 048
     Dates: start: 201702

REACTIONS (7)
  - Abdominal distension [Recovered/Resolved]
  - Dizziness [Recovered/Resolved]
  - Peripheral swelling [Recovered/Resolved]
  - Abdominal pain upper [Recovered/Resolved]
  - Photosensitivity reaction [Recovered/Resolved]
  - Oropharyngeal pain [Recovered/Resolved]
  - Swelling face [Recovered/Resolved]

NARRATIVE: CASE EVENT DATE: 201702
